FAERS Safety Report 9980442 (Version 1)
Quarter: 2014Q1

REPORT INFORMATION
  Report Type: Spontaneous
  Country: US (occurrence: US)
  Receive Date: 20140307
  Receipt Date: 20140307
  Transmission Date: 20141002
  Serious: No
  Sender: FDA-Public Use
  Company Number: US-009507513-1403USA003071

PATIENT
  Sex: Female

DRUGS (1)
  1. ASMANEX TWISTHALER [Suspect]
     Dosage: ONE PUFF TWICE A DAY, ORAL INHALATION
     Route: 055
     Dates: start: 20140227

REACTIONS (4)
  - Drug dose omission [Unknown]
  - Accidental overdose [Unknown]
  - Product quality issue [Unknown]
  - No adverse event [Unknown]
